FAERS Safety Report 4679606-0 (Version None)
Quarter: 2005Q2

REPORT INFORMATION
  Report Type: 
  Country: None (occurrence: None)
  Receive Date: 20050602
  Receipt Date: 20050427
  Transmission Date: 20051028
  Serious: Yes (Disabling, Other)
  Sender: FDA-Public Use
  Company Number: JP-BOEHRINGER INGELHEIM PHARMACEUTICALS, INC.-2005-BP-07067NB

PATIENT
  Sex: Male
  Weight: 67 kg

DRUGS (8)
  1. MICARDIS [Suspect]
     Indication: HYPERTENSION
     Route: 048
     Dates: start: 20041207, end: 20050219
  2. NORVASC [Concomitant]
     Route: 048
  3. CARDENALIN [Concomitant]
     Route: 048
  4. RENIVACE [Concomitant]
     Route: 048
  5. RENAGEL [Concomitant]
     Route: 048
  6. HUMACART R (INSULIN HUMAN (GENETICAL RECOMBINATION) [Concomitant]
     Route: 058
  7. PLETAL [Concomitant]
     Route: 048
  8. CALTAN (PRECIPITATED CALCIUM CARBONATE) [Concomitant]
     Route: 048

REACTIONS (1)
  - ANAEMIA [None]
